FAERS Safety Report 4616567-4 (Version None)
Quarter: 2005Q2

REPORT INFORMATION
  Report Type: 
  Country: None (occurrence: None)
  Receive Date: 20050311
  Receipt Date: 20041207
  Transmission Date: 20051028
  Serious: No
  Sender: FDA-Public Use
  Company Number: 2004-00899

PATIENT
  Age: 81 Year
  Sex: Female
  Weight: 54.4 kg

DRUGS (1)
  1. VELCADE [Suspect]
     Indication: MULTIPLE MYELOMA
     Dosage: INTRAVENOUS
     Route: 042
     Dates: start: 20040823, end: 20041108

REACTIONS (1)
  - NEUROPATHY PERIPHERAL [None]
